FAERS Safety Report 13097522 (Version 1)
Quarter: 2017Q1

REPORT INFORMATION
  Report Type: Spontaneous
  Country: US (occurrence: US)
  Receive Date: 20170108
  Receipt Date: 20170108
  Transmission Date: 20170428
  Serious: Yes (Hospitalization, Disabling)
  Sender: FDA-Public Use
  Company Number: None

PATIENT
  Age: 66 Year
  Sex: Male

DRUGS (15)
  1. STALEVO [Concomitant]
     Active Substance: CARBIDOPA\ENTACAPONE\LEVODOPA
  2. VITAMIN D [Concomitant]
     Active Substance: CHOLECALCIFEROL
  3. IMODIUM [Concomitant]
     Active Substance: LOPERAMIDE HYDROCHLORIDE
  4. MULTIVITAMINS [Concomitant]
     Active Substance: VITAMINS
  5. NOVOLOG [Concomitant]
     Active Substance: INSULIN ASPART
  6. AMLODIPINE [Concomitant]
     Active Substance: AMLODIPINE BESYLATE
  7. TYLENOL [Concomitant]
     Active Substance: ACETAMINOPHEN
  8. CREON [Suspect]
     Active Substance: PANCRELIPASE AMYLASE\PANCRELIPASE LIPASE\PANCRELIPASE PROTEASE
     Indication: DYSPEPSIA
     Dates: start: 20160726, end: 20161230
  9. VICODIN [Concomitant]
     Active Substance: ACETAMINOPHEN\HYDROCODONE BITARTRATE
  10. DETROL [Concomitant]
     Active Substance: TOLTERODINE TARTRATE
  11. LEVOTHYROXINE. [Concomitant]
     Active Substance: LEVOTHYROXINE
  12. CARBIDOP/LEVODOPA CR [Concomitant]
  13. CLOPIDOGREL [Concomitant]
     Active Substance: CLOPIDOGREL BISULFATE
  14. LOSARTAN. [Concomitant]
     Active Substance: LOSARTAN
  15. LOVASTIN [Concomitant]
     Active Substance: LOVASTATIN

REACTIONS (9)
  - Dysarthria [None]
  - Fatigue [None]
  - Diabetes mellitus inadequate control [None]
  - Claustrophobia [None]
  - Rash [None]
  - Asthenia [None]
  - Weight decreased [None]
  - Depression [None]
  - Gait disturbance [None]

NARRATIVE: CASE EVENT DATE: 20170104
